FAERS Safety Report 9747047 (Version 5)
Quarter: 2014Q1

REPORT INFORMATION
  Report Type: Spontaneous
  Country: CA (occurrence: CA)
  Receive Date: 20131211
  Receipt Date: 20140310
  Transmission Date: 20141002
  Serious: Yes (Death, Disabling, Other)
  Sender: FDA-Public Use
  Company Number: CA-009507513-1312CAN005012

PATIENT
  Age: 52 Year
  Sex: Female

DRUGS (10)
  1. VICTRELIS [Suspect]
     Indication: CHRONIC HEPATITIS C
     Dosage: 800 MG, 3 IN 1 D
     Route: 048
     Dates: start: 20131125
  2. PEGASYS [Suspect]
     Indication: CHRONIC HEPATITIS C
     Dosage: 180 MICROGRAM, 1 IN 1 WK (0.5 ML PRE-FILLED SYRINGE)
     Route: 058
     Dates: start: 20131028
  3. COPEGUS [Suspect]
     Indication: CHRONIC HEPATITIS C
     Dosage: 1000 MG 1 IN 1 D (35 TABLET/WEEK)
     Route: 048
     Dates: start: 20131028
  4. CLONAZEPAM [Concomitant]
     Route: 065
  5. BACLOFEN [Concomitant]
     Route: 065
  6. SEROQUEL [Concomitant]
     Route: 065
  7. CIPRALEX [Concomitant]
     Route: 065
  8. CYANOCOBALAMIN [Concomitant]
     Indication: PRODUCT USED FOR UNKNOWN INDICATION
     Dosage: 1, QM
     Route: 030
  9. THYROID [Concomitant]
     Dosage: 1, 1 MONTHS
     Route: 065
  10. LITHIUM [Concomitant]
     Indication: PRODUCT USED FOR UNKNOWN INDICATION
     Route: 065

REACTIONS (4)
  - Death [Fatal]
  - Hydromyelia [Not Recovered/Not Resolved]
  - Paralysis [Not Recovered/Not Resolved]
  - Surgery [Unknown]
